FAERS Safety Report 4744720-8 (Version None)
Quarter: 2005Q3

REPORT INFORMATION
  Report Type: 
  Country: None (occurrence: None)
  Receive Date: 20050815
  Receipt Date: 20050808
  Transmission Date: 20060218
  Serious: Yes (Life-Threatening)
  Sender: FDA-Public Use
  Company Number: 2005AP04333

PATIENT
  Age: 14303 Day
  Sex: Female

DRUGS (7)
  1. ANAPEINE [Suspect]
     Indication: EPIDURAL ANAESTHESIA
     Dosage: TEST DOSE
     Dates: start: 20050805, end: 20050805
  2. ANAPEINE [Suspect]
     Indication: HAEMORRHOIDS
     Dosage: TEST DOSE
     Dates: start: 20050805, end: 20050805
  3. ANAPEINE [Suspect]
     Route: 008
     Dates: start: 20050805, end: 20050805
  4. ANAPEINE [Suspect]
     Route: 008
     Dates: start: 20050805, end: 20050805
  5. ATROPINE SULFATE [Concomitant]
     Indication: PREMEDICATION
     Route: 030
     Dates: start: 20050805
  6. CERCINE [Concomitant]
     Indication: PREMEDICATION
     Route: 030
     Dates: start: 20050805
  7. XYLOCAINE [Concomitant]
     Indication: LOCAL ANAESTHESIA
     Route: 042
     Dates: start: 20050805

REACTIONS (6)
  - CONVULSION [None]
  - CYANOSIS [None]
  - DEPRESSED LEVEL OF CONSCIOUSNESS [None]
  - GAIT DISTURBANCE [None]
  - RESPIRATORY ARREST [None]
  - SHOCK [None]
